FAERS Safety Report 9372252 (Version 1)
Quarter: 2013Q2

REPORT INFORMATION
  Report Type: Spontaneous
  Country: FR (occurrence: FR)
  Receive Date: 20130627
  Receipt Date: 20130627
  Transmission Date: 20140414
  Serious: Yes (Hospitalization)
  Sender: FDA-Public Use
  Company Number: FR-ASTRAZENECA-2013SE47298

PATIENT
  Age: 28219 Day
  Sex: Male

DRUGS (7)
  1. CRESTOR [Suspect]
     Route: 048
     Dates: end: 20130601
  2. KARDEGIC [Suspect]
     Route: 048
  3. ALTEISDUO [Suspect]
     Indication: HYPERTENSION
     Dosage: 20 MG / 12.5 MG PER DOSE, 1 DF PER DAY
     Route: 048
     Dates: start: 201211, end: 20130531
  4. EBIXA [Suspect]
     Indication: DEMENTIA ALZHEIMER^S TYPE
     Dosage: 10 MG PER DAY TWO TIMES PER DAY
     Route: 048
     Dates: start: 201203
  5. MAINSERINE [Suspect]
     Route: 048
     Dates: start: 20130529, end: 20130531
  6. EXELON [Suspect]
     Indication: DEMENTIA ALZHEIMER^S TYPE
     Route: 062
     Dates: start: 20130530, end: 20130531
  7. REMINYL [Concomitant]

REACTIONS (1)
  - Sinus bradycardia [Recovered/Resolved]
